FAERS Safety Report 7550700-X (Version None)
Quarter: 2011Q2

REPORT INFORMATION
  Report Type: 
  Country: None (occurrence: None)
  Receive Date: 20110616
  Receipt Date: 20110607
  Transmission Date: 20111010
  Serious: Yes (Hospitalization)
  Sender: FDA-Public Use
  Company Number: IT-ELI_LILLY_AND_COMPANY-IT201106001703

PATIENT
  Sex: Male

DRUGS (6)
  1. HUMULIN R [Suspect]
     Indication: DIABETES MELLITUS
     Dosage: 14 IU, QD
     Route: 058
     Dates: start: 20070101, end: 20100629
  2. HUMULIN R [Suspect]
     Dosage: 14 IU, QD
  3. HUMULIN N [Suspect]
     Indication: DIABETES MELLITUS
     Dosage: 8 IU, QD
     Route: 058
     Dates: start: 20100630, end: 20100826
  4. HUMULIN R [Suspect]
     Dosage: 16 IU, QD
     Route: 058
     Dates: start: 20100630, end: 20100826
  5. LITHIUM CARBONATE [Concomitant]
     Dosage: UNK
  6. SINEMET [Concomitant]
     Dosage: UNK

REACTIONS (2)
  - HYPOGLYCAEMIA [None]
  - SOPOR [None]
